FAERS Safety Report 23512392 (Version 3)
Quarter: 2024Q1

REPORT INFORMATION
  Report Type: Spontaneous
  Country: CZ (occurrence: CZ)
  Receive Date: 20240212
  Receipt Date: 20240306
  Transmission Date: 20240409
  Serious: Yes (Death, Life-Threatening, Hospitalization, Other)
  Sender: FDA-Public Use
  Company Number: None

PATIENT
  Age: 69 Year
  Sex: Female
  Weight: 74 kg

DRUGS (8)
  1. BETAFERON [Suspect]
     Active Substance: INTERFERON BETA-1B
     Indication: Multiple sclerosis
     Dosage: 250 UNK
     Dates: end: 202308
  2. MAGNESIUM CARBONATE\MAGNESIUM OXIDE [Concomitant]
     Active Substance: MAGNESIUM CARBONATE\MAGNESIUM OXIDE
     Dosage: 2 TO 3 TIMES A WEEK
  3. METFORMIN HYDROCHLORIDE [Concomitant]
     Active Substance: METFORMIN HYDROCHLORIDE
  4. CALCIUM CARBONATE [Concomitant]
     Active Substance: CALCIUM CARBONATE
     Dosage: 0-0-1
  5. CHOLECALCIFEROL [Concomitant]
     Active Substance: CHOLECALCIFEROL
     Dosage: 12 DF, OW
  6. AMLODIPINE BESYLATE\LISINOPRIL [Concomitant]
     Active Substance: AMLODIPINE BESYLATE\LISINOPRIL
  7. ROSUVASTATIN CALCIUM [Concomitant]
     Active Substance: ROSUVASTATIN CALCIUM
  8. BONVIVA PLUS [Concomitant]

REACTIONS (28)
  - Pneumococcal sepsis [Fatal]
  - Organ failure [Fatal]
  - Respiratory failure [Unknown]
  - Septic shock [None]
  - Acute kidney injury [None]
  - Acidosis [None]
  - Peripheral ischaemia [None]
  - Anuria [None]
  - Hyperkalaemia [None]
  - Hypotension [None]
  - Bradycardia [None]
  - Muscle twitching [Recovered/Resolved]
  - Loss of consciousness [None]
  - Body temperature fluctuation [None]
  - Areflexia [None]
  - Inflammation [None]
  - Pseudomonas infection [None]
  - Unresponsive to stimuli [None]
  - Urinary tract candidiasis [None]
  - Functional gastrointestinal disorder [None]
  - Cardiovascular disorder [None]
  - Cardiac arrest [None]
  - Oliguria [None]
  - Blood urea increased [None]
  - Hyponatraemia [Unknown]
  - Pneumonia [Unknown]
  - Cardiac failure [Unknown]
  - Blood hyposmosis [Unknown]

NARRATIVE: CASE EVENT DATE: 20231001
